FAERS Safety Report 4985893-1 (Version None)
Quarter: 2006Q2

REPORT INFORMATION
  Report Type: 
  Country: None (occurrence: None)
  Receive Date: 20060421
  Receipt Date: 20060410
  Transmission Date: 20061013
  Serious: Yes (Other)
  Sender: FDA-Public Use
  Company Number: HQWYE725610APR06

PATIENT
  Age: 72 Year
  Sex: Female

DRUGS (3)
  1. PANTOZOL           (PANTOPRAZOLE  DELAYED RELEASE) [Suspect]
     Indication: DUODENAL ULCER
     Dosage: SEE IMAGE
     Route: 048
     Dates: start: 20050628, end: 20050704
  2. PANTOZOL           (PANTOPRAZOLE  DELAYED RELEASE) [Suspect]
     Indication: DUODENAL ULCER
     Dosage: SEE IMAGE
     Route: 048
     Dates: start: 20050705, end: 20050719
  3. PANTOZOL           (PANTOPRAZOLE  DELAYED RELEASE) [Suspect]
     Indication: DUODENAL ULCER
     Dosage: SEE IMAGE
     Route: 048
     Dates: start: 20050909

REACTIONS (9)
  - ABDOMINAL PAIN [None]
  - AORTIC ARTERIOSCLEROSIS [None]
  - BACK PAIN [None]
  - BLOOD CHOLESTEROL INCREASED [None]
  - BLOOD TRIGLYCERIDES INCREASED [None]
  - CALCIFICATION OF MUSCLE [None]
  - HEPATIC STEATOSIS [None]
  - LOW DENSITY LIPOPROTEIN INCREASED [None]
  - RENAL CYST [None]
